FAERS Safety Report 5244846-9 (Version None)
Quarter: 2007Q1

REPORT INFORMATION
  Report Type: 
  Country: None (occurrence: None)
  Receive Date: 20070216
  Receipt Date: 20070202
  Transmission Date: 20070707
  Serious: Yes (Hospitalization)
  Sender: FDA-Public Use
  Company Number: T200700161

PATIENT
  Age: 50 Year
  Sex: Male

DRUGS (1)
  1. HEXABRIX [Suspect]
     Indication: ANGIOGRAM
     Dosage: 10 ML, SINGLE, INTRA-ARTERIAL
     Route: 013
     Dates: start: 20070125, end: 20070125

REACTIONS (7)
  - ARTERIOSPASM CORONARY [None]
  - HYPOAESTHESIA [None]
  - NAUSEA [None]
  - PRURITUS [None]
  - RASH [None]
  - SHOCK [None]
  - VOMITING [None]
